FAERS Safety Report 5066312-6 (Version None)
Quarter: 2006Q3

REPORT INFORMATION
  Report Type: 
  Country: None (occurrence: None)
  Receive Date: 20060706
  Receipt Date: 20060323
  Transmission Date: 20061208
  Serious: Yes (Other)
  Sender: FDA-Public Use
  Company Number: 2006041311

PATIENT
  Age: 13 Year
  Sex: Male
  Weight: 55.7924 kg

DRUGS (2)
  1. ZMAX [Suspect]
     Indication: SINUSITIS
     Dates: start: 20060321
  2. DIGOXIN [Concomitant]

REACTIONS (4)
  - ARTHRALGIA [None]
  - CHEST DISCOMFORT [None]
  - MYALGIA [None]
  - URTICARIA [None]
